FAERS Safety Report 15495832 (Version 1)
Quarter: 2018Q4

REPORT INFORMATION
  Report Type: Spontaneous
  Country: US (occurrence: US)
  Receive Date: 20181013
  Receipt Date: 20181013
  Transmission Date: 20190205
  Serious: No
  Sender: FDA-Public Use
  Company Number: US-009507513-1809USA013065

PATIENT

DRUGS (3)
  1. VARIVAX [Suspect]
     Active Substance: VARICELLA-ZOSTER VIRUS STRAIN OKA/MERCK LIVE ANTIGEN
     Indication: PROPHYLAXIS
     Dates: start: 20180926, end: 20180926
  2. STERILE DILUENT (WATER) [Suspect]
     Active Substance: WATER
     Dosage: UNK
     Dates: start: 20180926, end: 20180926
  3. M-M-R II [Suspect]
     Active Substance: MEASLES VIRUS STRAIN ENDERS^ ATTENUATED EDMONSTON LIVE ANTIGEN\MUMPS VIRUS STRAIN B LEVEL JERYL LYNN LIVE ANTIGEN\RUBELLA VIRUS STRAIN WISTAR RA 27/3 LIVE ANTIGEN
     Indication: PROPHYLAXIS
     Dates: start: 20180926, end: 20180926

REACTIONS (3)
  - Product use issue [Unknown]
  - Underdose [Unknown]
  - No adverse event [Unknown]

NARRATIVE: CASE EVENT DATE: 20180926
